FAERS Safety Report 9333011 (Version 2)
Quarter: 2013Q3

REPORT INFORMATION
  Report Type: Spontaneous
  Country: US (occurrence: US)
  Receive Date: 20130606
  Receipt Date: 20130712
  Transmission Date: 20140515
  Serious: No
  Sender: FDA-Public Use
  Company Number: US-PFIZER INC-2013170117

PATIENT
  Age: 71 Year
  Sex: Male

DRUGS (1)
  1. NICOTROL INHALER [Suspect]
     Dosage: UNK

REACTIONS (1)
  - Dysphonia [Unknown]
